FAERS Safety Report 7338531-7 (Version None)
Quarter: 2011Q1

REPORT INFORMATION
  Report Type: 
  Country: None (occurrence: None)
  Receive Date: 20110308
  Receipt Date: 20110225
  Transmission Date: 20110831
  Serious: Yes (Other)
  Sender: FDA-Public Use
  Company Number: BR-JNJFOC-20110300665

PATIENT
  Age: 57 Year
  Sex: Female

DRUGS (2)
  1. REMICADE [Suspect]
     Indication: PSORIASIS
     Route: 042
  2. REMICADE [Suspect]
     Route: 042

REACTIONS (6)
  - INFUSION RELATED REACTION [None]
  - THROAT IRRITATION [None]
  - ASPHYXIA [None]
  - DRY THROAT [None]
  - OEDEMA PERIPHERAL [None]
  - NASAL CONGESTION [None]
